FAERS Safety Report 10153516 (Version 2)
Quarter: 2014Q2

REPORT INFORMATION
  Report Type: Report from Study
  Country: JP (occurrence: JP)
  Receive Date: 20140505
  Receipt Date: 20140505
  Transmission Date: 20141212
  Serious: Yes (Hospitalization)
  Sender: FDA-Public Use
  Company Number: JP-ABBVIE-08P-087-0478668-00

PATIENT
  Age: 21 Year
  Sex: Female

DRUGS (11)
  1. KALETRA TABLETS 200MG/50MG [Suspect]
     Indication: HIV INFECTION
     Dosage: FOUR TABLETS, 800MG/200MG, DAILY
     Route: 048
     Dates: start: 20070918, end: 20071009
  2. KALETRA TABLETS 200MG/50MG [Suspect]
     Dosage: FOUR TABLETS, 800MG/200MG, DAILY
     Route: 048
     Dates: start: 20071011
  3. ZIDOVUDINE [Suspect]
     Indication: HIV INFECTION
     Dosage: 400MG, DAILY
     Route: 048
     Dates: start: 20070918, end: 20071009
  4. ZIDOVUDINE [Suspect]
     Dosage: 120 MG/HX1H
     Route: 042
     Dates: start: 20071010, end: 20071010
  5. ZIDOVUDINE [Suspect]
     Dosage: 60 MG/HX5H
     Route: 042
     Dates: start: 20071010, end: 20071010
  6. ZIDOVUDINE [Suspect]
     Dosage: 400MG, DAILY
     Route: 048
     Dates: start: 20071011
  7. LAMIVUDINE [Suspect]
     Indication: HIV INFECTION
     Route: 048
     Dates: start: 20070918, end: 20071009
  8. LAMIVUDINE [Suspect]
     Dosage: 300MG, DAILY
     Route: 048
     Dates: start: 20071011
  9. PENTAMIDINE ISETHIONATE [Suspect]
     Indication: ANTIFUNGAL PROPHYLAXIS
     Dosage: 300MG, DAILY
     Route: 055
     Dates: start: 20070915
  10. CEFAZOLIN SODIUM [Concomitant]
     Indication: INFECTION PROPHYLAXIS
     Route: 042
     Dates: start: 20071010, end: 20071011
  11. HEPARIN SODIUM [Concomitant]
     Indication: THROMBOSIS PROPHYLAXIS
     Route: 042
     Dates: start: 20071010, end: 20071010

REACTIONS (2)
  - Threatened labour [Recovered/Resolved]
  - Anaemia [Recovered/Resolved]
